FAERS Safety Report 19908735 (Version 1)
Quarter: 2021Q4

REPORT INFORMATION
  Report Type: Spontaneous
  Country: IT (occurrence: IT)
  Receive Date: 20211001
  Receipt Date: 20211001
  Transmission Date: 20220303
  Serious: Yes (Other)
  Sender: FDA-Public Use
  Company Number: None

PATIENT
  Age: 75 Year
  Sex: Male
  Weight: 67 kg

DRUGS (3)
  1. ALIMTA [Suspect]
     Active Substance: PEMETREXED DISODIUM
     Indication: Neoplasm malignant
     Dosage: 850 MG, UNKNOWN
     Route: 065
     Dates: start: 20210805
  2. CARBOPLATIN [Suspect]
     Active Substance: CARBOPLATIN
     Indication: Neoplasm malignant
     Dosage: 385 MG, UNKNOWN
     Route: 065
     Dates: start: 20210805
  3. KEYTRUDA [Suspect]
     Active Substance: PEMBROLIZUMAB
     Indication: Neoplasm malignant
     Dosage: 200 MG, UNKNOWN
     Route: 065
     Dates: start: 20210805

REACTIONS (3)
  - Dysphonia [Unknown]
  - Asthenia [Unknown]
  - Anaemia [Unknown]

NARRATIVE: CASE EVENT DATE: 20210915
